FAERS Safety Report 7933692 (Version 2)
Quarter: 2014Q1

REPORT INFORMATION
  Report Type: Spontaneous
  Country: US (occurrence: US)
  Receive Date: 20110506
  Receipt Date: 20140124
  Transmission Date: 20141002
  Serious: Yes (Hospitalization, Other)
  Sender: FDA-Public Use
  Company Number: US-BAYER-2011-037836

PATIENT
  Age: 28 Year
  Sex: Female
  Weight: 176.87 kg

DRUGS (6)
  1. YAZ [Suspect]
  2. YASMIN [Suspect]
  3. OCELLA [Suspect]
  4. SEROQUEL [Concomitant]
     Dosage: 200 MG, UNK
     Dates: start: 20090605
  5. METFORMIN [Concomitant]
     Dosage: 500 MG, UNK
     Dates: start: 20090605
  6. LISINOPRIL [Concomitant]
     Dosage: 5 MG, UNK
     Dates: start: 20090605

REACTIONS (9)
  - Injury [None]
  - Organ failure [None]
  - Cholecystectomy [None]
  - Pain [None]
  - General physical health deterioration [None]
  - Anxiety [None]
  - Anhedonia [None]
  - Emotional distress [None]
  - Cholecystitis [None]
